FAERS Safety Report 7876582-4 (Version None)
Quarter: 2011Q4

REPORT INFORMATION
  Report Type: 
  Country: None (occurrence: None)
  Receive Date: 20111031
  Receipt Date: 20111027
  Transmission Date: 20120403
  Serious: Yes (Death)
  Sender: FDA-Public Use
  Company Number: US-US-EMD SERONO, INC.-7091942

PATIENT
  Sex: Female

DRUGS (8)
  1. GABAPENTIN [Concomitant]
  2. CITALOPRAM HYDROBROMIDE [Concomitant]
  3. REBIF [Suspect]
     Indication: MULTIPLE SCLEROSIS
     Route: 058
     Dates: start: 20110715
  4. DIAZEPAM [Concomitant]
  5. NEXIUM [Concomitant]
  6. MORPHINE [Concomitant]
  7. ZOLPIDEM [Concomitant]
  8. SIMVASTATIN [Concomitant]

REACTIONS (10)
  - FATIGUE [None]
  - CONTUSION [None]
  - SINUS DISORDER [None]
  - OROPHARYNGEAL PAIN [None]
  - FEELING OF BODY TEMPERATURE CHANGE [None]
  - PULMONARY OEDEMA [None]
  - RASH [None]
  - PYREXIA [None]
  - SLEEP APNOEA SYNDROME [None]
  - DEPRESSED MOOD [None]
